FAERS Safety Report 13677746 (Version 2)
Quarter: 2017Q2

REPORT INFORMATION
  Report Type: Spontaneous
  Country: US (occurrence: US)
  Receive Date: 20170622
  Receipt Date: 20170628
  Transmission Date: 20170830
  Serious: Yes (Death, Life-Threatening, Hospitalization, Other)
  Sender: FDA-Public Use
  Company Number: US-PFIZER INC-2016427127

PATIENT
  Age: 49 Year
  Sex: Male
  Weight: 86 kg

DRUGS (19)
  1. OXYCODONE [Concomitant]
     Active Substance: OXYCODONE
     Dosage: 10 MG, AS NEEDED (1 TABS ORAL EVERY 6 HOURS PRN)
     Route: 048
  2. COMPAZINE [Concomitant]
     Active Substance: PROCHLORPERAZINE MALEATE
     Indication: NAUSEA
     Dosage: 10 MG, AS NEEDED (1 TAB(S) ORAL EVERY 6 HOURS PRN)
     Route: 048
     Dates: start: 20160825
  3. ADVAIR HFA [Concomitant]
     Active Substance: FLUTICASONE PROPIONATE\SALMETEROL XINAFOATE
     Dosage: UNK (FLUTICASONE PROPIONATE115MCG-SALMETEROL XINAFOATE 21MCG)
     Dates: start: 20160901
  4. ATIVAN [Concomitant]
     Active Substance: LORAZEPAM
  5. XALKORI [Suspect]
     Active Substance: CRIZOTINIB
     Indication: LUNG NEOPLASM MALIGNANT
     Dosage: 250 MG, 2X/DAY
     Route: 048
     Dates: start: 20160901, end: 20161111
  6. LORAZEPAM. [Concomitant]
     Active Substance: LORAZEPAM
     Indication: ANXIETY
     Dosage: 0.5 MG, AS NEEDED (1 TABS ORAL EVERY 4 HOURS PRN)
     Route: 048
     Dates: start: 20160825
  7. LORAZEPAM. [Concomitant]
     Active Substance: LORAZEPAM
     Indication: TREMOR
  8. FOLIC ACID. [Concomitant]
     Active Substance: FOLIC ACID
     Dosage: 1 MG, DAILY
     Route: 048
     Dates: start: 20160825
  9. SPIRIVA [Concomitant]
     Active Substance: TIOTROPIUM BROMIDE MONOHYDRATE
     Dosage: 18 UG, DAILY
     Dates: start: 20160901
  10. CRIZOTINIB [Concomitant]
     Active Substance: CRIZOTINIB
     Dosage: 250 MG, 2X/DAY
     Route: 048
     Dates: start: 20160901
  11. MORPHINE [Concomitant]
     Active Substance: MORPHINE
     Indication: PAIN
     Dosage: 15 MG, AS NEEDED (1-2 ITAB {S} ORAL EVERY 4 HOURS PRN )
     Dates: start: 20160825
  12. THORAZINE [Concomitant]
     Active Substance: CHLORPROMAZINE
     Indication: HICCUPS
     Dosage: 25 MG, AS NEEDED[EVERY FOUR HOURS AS NEEDED]
     Route: 048
     Dates: start: 20161116
  13. DULERA [Concomitant]
     Active Substance: FORMOTEROL FUMARATE DIHYDRATE\MOMETASONE FUROATE
  14. POTASSIUM [Concomitant]
     Active Substance: POTASSIUM
  15. ONDANSETRON HCL [Concomitant]
     Active Substance: ONDANSETRON HYDROCHLORIDE
     Indication: NAUSEA
     Dosage: 8 MG, AS NEEDED (THREE TIMES A DAY PRN )
     Route: 048
     Dates: start: 20160825
  16. POTASSIUM CHLORIDE. [Concomitant]
     Active Substance: POTASSIUM CHLORIDE
     Dosage: 20 MEQ, DAILY
     Route: 048
     Dates: start: 20160825
  17. ZOFRAN [Concomitant]
     Active Substance: ONDANSETRON HYDROCHLORIDE
  18. COLACE [Concomitant]
     Active Substance: DOCUSATE SODIUM
  19. ADVAIR HFA [Concomitant]
     Active Substance: FLUTICASONE PROPIONATE\SALMETEROL XINAFOATE
     Dosage: UNK UNK, 2X/DAY[FLUTICASONE INHALER 115/ ADVAIR 21MCG TWO PUFFS]
     Route: 048

REACTIONS (7)
  - Leukocytosis [Unknown]
  - Neoplasm progression [Fatal]
  - Retroperitoneal haemorrhage [Unknown]
  - Acute kidney injury [Not Recovered/Not Resolved]
  - Haemoptysis [Unknown]
  - Adrenal haemorrhage [Fatal]
  - Anaemia [Not Recovered/Not Resolved]

NARRATIVE: CASE EVENT DATE: 20161123
